FAERS Safety Report 22282489 (Version 1)
Quarter: 2023Q2

REPORT INFORMATION
  Report Type: Spontaneous
  Country: CN (occurrence: CN)
  Receive Date: 20230504
  Receipt Date: 20230504
  Transmission Date: 20230722
  Serious: Yes (Hospitalization, Other)
  Sender: FDA-Public Use
  Company Number: CN-MACLEODS PHARMACEUTICALS US LTD-MAC2023041049

PATIENT

DRUGS (11)
  1. CLOPIDOGREL [Interacting]
     Active Substance: CLOPIDOGREL BISULFATE
     Indication: Antiplatelet therapy
     Dosage: 75 MILLIGRAM, QD (PER EVENING)
     Route: 048
     Dates: start: 202104
  2. REPAGLINIDE [Interacting]
     Active Substance: REPAGLINIDE
     Indication: Diabetic nephropathy
     Dosage: 1.5 MILLIGRAM, QD(REDUCED THE DOSE OF REPAGLINIDE TO TWICE DAILY, 1 MG IN THE MORNING AND 0.5 MG AT
     Route: 065
     Dates: start: 202104, end: 202104
  3. REPAGLINIDE [Interacting]
     Active Substance: REPAGLINIDE
     Indication: Type 2 diabetes mellitus
     Dosage: 4 MILLIGRAM, QD(1 MG OF REPAGLINIDE IN THE MORNING, 2 MG AT NOON, AND 1 MG IN THE EVENING)
     Route: 065
     Dates: end: 202104
  4. KALLIDINOGENASE [Concomitant]
     Active Substance: KALLIDINOGENASE
     Indication: Product used for unknown indication
     Dosage: UNK
     Route: 065
  5. HIRUDIN [Concomitant]
     Active Substance: HIRUDIN
     Indication: Product used for unknown indication
     Dosage: UNK
     Route: 065
  6. OPHIOCORDYCEPS SINENSIS [Concomitant]
     Active Substance: OPHIOCORDYCEPS SINENSIS
     Indication: Diabetic nephropathy
     Dosage: 2 GRAM
     Route: 065
  7. OPHIOCORDYCEPS SINENSIS [Concomitant]
     Active Substance: OPHIOCORDYCEPS SINENSIS
     Indication: Type 2 diabetes mellitus
     Dosage: UNK
     Route: 065
  8. ATORVASTATIN CALCIUM [Concomitant]
     Active Substance: ATORVASTATIN CALCIUM
     Indication: Product used for unknown indication
     Dosage: UNK
     Route: 065
  9. Uremic clearance granules [Concomitant]
     Indication: Product used for unknown indication
     Dosage: 5 GRAM, TID(EVERY 8 HOURS IN A DAY)
     Route: 065
  10. UROKINASE [Concomitant]
     Active Substance: UROKINASE
     Indication: Thrombolysis
     Dosage: UNK
     Route: 042
  11. NIFEDIPINE [Concomitant]
     Active Substance: NIFEDIPINE
     Indication: Hypertension
     Dosage: 10 MILLIGRAM, TID (EVERY 8 HOUR)
     Route: 065

REACTIONS (2)
  - Hypoglycaemia [Recovered/Resolved]
  - Drug interaction [Recovered/Resolved]

NARRATIVE: CASE EVENT DATE: 20210401
